FAERS Safety Report 20566872 (Version 1)
Quarter: 2022Q1

REPORT INFORMATION
  Report Type: Spontaneous
  Country: US (occurrence: None)
  Receive Date: 20220307
  Receipt Date: 20220307
  Transmission Date: 20220424
  Serious: Yes (Hospitalization)
  Sender: FDA-Public Use
  Company Number: None

PATIENT
  Age: 32 Year
  Sex: Female
  Weight: 74.7 kg

DRUGS (1)
  1. SUBOXONE [Suspect]
     Active Substance: BUPRENORPHINE HYDROCHLORIDE\NALOXONE HYDROCHLORIDE
     Indication: Substance abuse
     Dosage: FREQUENCY : DAILY;?
     Route: 060
     Dates: start: 20180701, end: 20220307

REACTIONS (1)
  - Tooth erosion [None]

NARRATIVE: CASE EVENT DATE: 20190105
